FAERS Safety Report 8852302 (Version 3)
Quarter: 2013Q1

REPORT INFORMATION
  Report Type: Spontaneous
  Country: DE (occurrence: None)
  Receive Date: 20121017
  Receipt Date: 20121219
  Transmission Date: 20140127
  Serious: Yes (Hospitalization, Other)
  Sender: FDA-Public Use
  Company Number: 2012MPI00452

PATIENT
  Age: 16 Year
  Sex: Female
  Weight: 84 kg

DRUGS (1)
  1. BRENTUXIMAB VEDOTIN [Suspect]
     Indication: HODGKIN^S DISEASE RECURRENT
     Route: 042
     Dates: start: 20120813, end: 20120813

REACTIONS (28)
  - Hepatotoxicity [None]
  - Hepatic congestion [None]
  - Hypokalaemia [None]
  - Leukopenia [None]
  - Asthenia [None]
  - Fatigue [None]
  - Dyspepsia [None]
  - Hepatic steatosis [None]
  - Vomiting [None]
  - Pain in extremity [None]
  - Nausea [None]
  - Hyperuricaemia [None]
  - Febrile neutropenia [None]
  - Mitral valve incompetence [None]
  - Dehydration [None]
  - Blood phosphorus decreased [None]
  - Blood glucose increased [None]
  - Gastritis [None]
  - Sinus tachycardia [None]
  - Oedema peripheral [None]
  - Dyspnoea exertional [None]
  - Brain natriuretic peptide increased [None]
  - Pain of skin [None]
  - Alopecia [None]
  - Mucosal inflammation [None]
  - Capillary leak syndrome [None]
  - Liver disorder [None]
  - Overdose [None]
